FAERS Safety Report 17610702 (Version 1)
Quarter: 2020Q2

REPORT INFORMATION
  Report Type: Spontaneous
  Country: CA (occurrence: CA)
  Receive Date: 20200401
  Receipt Date: 20200401
  Transmission Date: 20200713
  Serious: Yes (Life-Threatening)
  Sender: FDA-Public Use
  Company Number: CA-TEVA-2020-CA-1216773

PATIENT
  Age: 71 Year
  Sex: Female
  Weight: 114 kg

DRUGS (2)
  1. ATORVASTATIN CALCIUM. [Suspect]
     Active Substance: ATORVASTATIN CALCIUM
     Indication: PRODUCT USED FOR UNKNOWN INDICATION
     Dosage: 40 MILLIGRAM DAILY;
     Route: 048
  2. ENALAPRIL [Concomitant]
     Active Substance: ENALAPRIL

REACTIONS (7)
  - Hepatic enzyme abnormal [Unknown]
  - Respiratory disorder [Unknown]
  - Rhabdomyolysis [Unknown]
  - Acute kidney injury [Unknown]
  - Pain in extremity [Unknown]
  - Asthenia [Unknown]
  - Hepatic failure [Unknown]
